FAERS Safety Report 18499332 (Version 1)
Quarter: 2020Q4

REPORT INFORMATION
  Report Type: Spontaneous
  Country: CA (occurrence: CA)
  Receive Date: 20201113
  Receipt Date: 20201113
  Transmission Date: 20210114
  Serious: Yes (Other)
  Sender: FDA-Public Use
  Company Number: CA-PFIZER INC-2020443722

PATIENT
  Age: 6 Decade
  Sex: Male

DRUGS (4)
  1. NORVASC [Suspect]
     Active Substance: AMLODIPINE BESYLATE
     Indication: BLOOD PRESSURE ABNORMAL
     Dosage: 5 MG
  2. ALTACE [Concomitant]
     Active Substance: RAMIPRIL
     Dosage: 2.5 MG
  3. NORVASC [Suspect]
     Active Substance: AMLODIPINE BESYLATE
     Dosage: 10 MG (2X 5MG)
  4. NORVASC [Suspect]
     Active Substance: AMLODIPINE BESYLATE
     Dosage: 2.5 MG

REACTIONS (6)
  - Product label issue [Unknown]
  - Blindness [Unknown]
  - Product dispensing error [Unknown]
  - Drug ineffective [Unknown]
  - Product taste abnormal [Unknown]
  - Poor quality product administered [Unknown]
